FAERS Safety Report 15099532 (Version 4)
Quarter: 2018Q3

REPORT INFORMATION
  Report Type: Spontaneous
  Country: US (occurrence: US)
  Receive Date: 20180702
  Receipt Date: 20180816
  Transmission Date: 20181010
  Serious: No
  Sender: FDA-Public Use
  Company Number: US-009507513-1807USA000219

PATIENT
  Age: 35 Year
  Sex: Female
  Weight: 62.59 kg

DRUGS (2)
  1. NEXPLANON [Suspect]
     Active Substance: ETONOGESTREL
     Dosage: UNK
  2. NEXPLANON [Suspect]
     Active Substance: ETONOGESTREL
     Indication: CONTRACEPTION
     Dosage: 68 MG, DAILY
     Route: 023
     Dates: start: 20180626, end: 20180703

REACTIONS (5)
  - Incorrect route of drug administration [Unknown]
  - Arthralgia [Recovered/Resolved]
  - Depression [Recovered/Resolved]
  - Mood altered [Unknown]
  - Menstruation irregular [Unknown]

NARRATIVE: CASE EVENT DATE: 201806
